FAERS Safety Report 10138086 (Version 1)
Quarter: 2014Q2

REPORT INFORMATION
  Report Type: Spontaneous
  Country: US (occurrence: US)
  Receive Date: 20140429
  Receipt Date: 20140429
  Transmission Date: 20141212
  Serious: Yes (Other)
  Sender: FDA-Public Use
  Company Number: US-BAYER-2014-061198

PATIENT
  Age: 36 Year
  Sex: Female

DRUGS (9)
  1. YASMIN [Suspect]
  2. SERTRALINE HYDROCHLORIDE [Concomitant]
     Dosage: 50 MG, UNK
  3. ALBUTEROL [Concomitant]
     Dosage: 90MCG
     Route: 045
  4. AZITHROMYCIN [Concomitant]
     Dosage: 250 MG, UNK
  5. AVELOX [Concomitant]
     Dosage: 400 MG, UNK
  6. CARISOPRODOL [Concomitant]
     Dosage: 350 MG, UNK
  7. HYDROCODONE/ACETAMINOPHEN [Concomitant]
     Dosage: 5-500MG
  8. NABUMETONE [Concomitant]
     Dosage: 750 MG, UNK
  9. ZOLOFT [Concomitant]
     Indication: DEPRESSION
     Dosage: 50 MG, UNK

REACTIONS (1)
  - Pulmonary embolism [None]
